FAERS Safety Report 15549872 (Version 1)
Quarter: 2018Q4

REPORT INFORMATION
  Report Type: Spontaneous
  Country: US (occurrence: US)
  Receive Date: 20181018
  Receipt Date: 20181018
  Transmission Date: 20190205
  Serious: Yes (Hospitalization)
  Sender: FDA-Public Use
  Company Number: None

PATIENT
  Age: 58 Year
  Sex: Male
  Weight: 55.16 kg

DRUGS (2)
  1. ASPIRIN. [Suspect]
     Active Substance: ASPIRIN
     Indication: DISEASE RISK FACTOR
     Route: 048
     Dates: start: 20160720, end: 20180511
  2. NAPROXEN. [Suspect]
     Active Substance: NAPROXEN
     Indication: ANKYLOSING SPONDYLITIS
     Route: 048
     Dates: start: 20171201, end: 20180511

REACTIONS (6)
  - Nausea [None]
  - Gastric haemorrhage [None]
  - Iron deficiency anaemia [None]
  - Intestinal metaplasia [None]
  - Vomiting [None]
  - Gastric ulcer [None]

NARRATIVE: CASE EVENT DATE: 20180511
